FAERS Safety Report 24595295 (Version 2)
Quarter: 2024Q4

REPORT INFORMATION
  Report Type: Report from Study
  Country: US (occurrence: US)
  Receive Date: 20241108
  Receipt Date: 20241128
  Transmission Date: 20250115
  Serious: Yes (Other)
  Sender: ABBVIE
  Company Number: US-ABBVIE-5993101

PATIENT
  Age: 65 Year
  Sex: Male
  Weight: 91 kg

DRUGS (2)
  1. SKYRIZI [Suspect]
     Active Substance: RISANKIZUMAB-RZAA
     Indication: Psoriasis
     Dosage: FORM STRENGTH: 150 MILLIGRAM
     Route: 058
     Dates: start: 20200320
  2. OZEMPIC [Concomitant]
     Active Substance: SEMAGLUTIDE
     Indication: Weight decreased

REACTIONS (1)
  - Cyst [Recovered/Resolved]

NARRATIVE: CASE EVENT DATE: 20240901
